FAERS Safety Report 9460513 (Version 2)
Quarter: 2013Q3

REPORT INFORMATION
  Report Type: Spontaneous
  Country: US (occurrence: US)
  Receive Date: 20130815
  Receipt Date: 20130902
  Transmission Date: 20140515
  Serious: No
  Sender: FDA-Public Use
  Company Number: US-PFIZER INC-2013236206

PATIENT
  Sex: Female

DRUGS (1)
  1. SKELAXIN [Suspect]
     Dosage: UNK

REACTIONS (5)
  - Incorrect dose administered [Unknown]
  - Myalgia [Unknown]
  - Migraine [Unknown]
  - Memory impairment [Unknown]
  - Renal disorder [Unknown]
